FAERS Safety Report 9273960 (Version 1)
Quarter: 2013Q2

REPORT INFORMATION
  Report Type: Spontaneous
  Country: US (occurrence: US)
  Receive Date: 20130506
  Receipt Date: 20130506
  Transmission Date: 20140414
  Serious: No
  Sender: FDA-Public Use
  Company Number: US-AMGEN-USASP2013024500

PATIENT
  Age: 43 Year
  Sex: Female
  Weight: 67.57 kg

DRUGS (6)
  1. ENBREL [Suspect]
     Indication: RHEUMATOID ARTHRITIS
     Dosage: 50 MG, WEEKLY
     Route: 058
     Dates: start: 20100101
  2. PLAQUENIL                          /00072602/ [Concomitant]
     Dosage: 200 MG, BID
     Route: 048
  3. PREDNISONE [Concomitant]
     Dosage: 10 MG, DAILY
  4. METHOTREXATE [Concomitant]
     Dosage: 50 MG, WEEKLY
     Route: 048
  5. FOLIC ACID [Concomitant]
     Dosage: 1 MG, DAILY
     Route: 048
  6. NEXIUM                             /01479302/ [Concomitant]
     Dosage: 40 MG, DAILY
     Route: 048

REACTIONS (6)
  - Tonsillar hypertrophy [Not Recovered/Not Resolved]
  - Arthralgia [Not Recovered/Not Resolved]
  - Asthenia [Recovered/Resolved]
  - Pain [Recovered/Resolved]
  - Vital functions abnormal [Recovered/Resolved]
  - Gait disturbance [Recovered/Resolved]
